FAERS Safety Report 11150597 (Version 2)
Quarter: 2015Q2

REPORT INFORMATION
  Report Type: Report from Study
  Country: MX (occurrence: MX)
  Receive Date: 20150601
  Receipt Date: 20150610
  Transmission Date: 20150821
  Serious: Yes (Hospitalization, Other)
  Sender: FDA-Public Use
  Company Number: MX-UCBSA-2015016237

PATIENT
  Age: 51 Year
  Sex: Male
  Weight: 69.2 kg

DRUGS (2)
  1. VITERNUM [Concomitant]
     Indication: MALNUTRITION
     Dosage: 60 MG, ONCE DAILY (QD)
     Dates: start: 20150330
  2. CERTOLIZUMAB PEGOL ASP [Suspect]
     Active Substance: CERTOLIZUMAB PEGOL
     Indication: ANKYLOSING SPONDYLITIS
     Dosage: 200 MG, UNK
     Route: 058
     Dates: start: 20120402, end: 20150105

REACTIONS (1)
  - Abdominal abscess [Unknown]

NARRATIVE: CASE EVENT DATE: 20150515
